FAERS Safety Report 7198082-X (Version None)
Quarter: 2010Q4

REPORT INFORMATION
  Report Type: 
  Country: None (occurrence: None)
  Receive Date: 20101214
  Receipt Date: 20101129
  Transmission Date: 20110411
  Serious: Yes (Other)
  Sender: FDA-Public Use
  Company Number: 2010P1002995

PATIENT
  Sex: Male

DRUGS (2)
  1. FENTANYL [Suspect]
     Indication: BREAKTHROUGH PAIN
     Dosage: ; IS
  2. CON MEDS [Concomitant]

REACTIONS (4)
  - CYANOSIS [None]
  - LOSS OF CONSCIOUSNESS [None]
  - OVERDOSE [None]
  - UPPER AIRWAY OBSTRUCTION [None]
